FAERS Safety Report 7833123-5 (Version None)
Quarter: 2011Q4

REPORT INFORMATION
  Report Type: 
  Country: None (occurrence: None)
  Receive Date: 20111024
  Receipt Date: 20111012
  Transmission Date: 20120403
  Serious: Yes (Other)
  Sender: FDA-Public Use
  Company Number: US-JNJFOC-20110700063

PATIENT
  Sex: Female
  Weight: 112.49 kg

DRUGS (16)
  1. LEVOXYL [Concomitant]
     Route: 065
  2. TOPAMAX [Suspect]
     Indication: RADICULOPATHY
     Route: 048
  3. TOPAMAX [Suspect]
     Indication: NEURALGIA
     Route: 048
  4. TOPAMAX [Suspect]
     Indication: NEUROPATHY PERIPHERAL
     Route: 048
     Dates: start: 20080101, end: 20110301
  5. PRISTIQ [Concomitant]
     Route: 065
  6. BONIVA [Concomitant]
     Route: 065
  7. UNKNOWN MEDICATION [Concomitant]
     Route: 065
  8. ATARAX [Concomitant]
     Route: 065
  9. TOPAMAX [Suspect]
     Route: 048
     Dates: start: 20080101, end: 20110301
  10. CLONIDINE [Concomitant]
     Route: 065
  11. NEXIUM [Concomitant]
     Route: 065
  12. TOPAMAX [Suspect]
     Route: 048
  13. CYTOMEL [Concomitant]
     Route: 065
  14. TOPAMAX [Suspect]
     Route: 048
     Dates: start: 20080101, end: 20110301
  15. TOPAMAX [Suspect]
     Indication: FIBROMYALGIA
     Route: 048
     Dates: start: 20080101, end: 20110301
  16. TOPAMAX [Suspect]
     Route: 048

REACTIONS (4)
  - ACTINIC KERATOSIS [None]
  - SKIN LESION [None]
  - ALOPECIA [None]
  - SPINAL COLUMN STENOSIS [None]
